FAERS Safety Report 13037599 (Version 2)
Quarter: 2016Q4

REPORT INFORMATION
  Report Type: Spontaneous
  Country: CA (occurrence: CA)
  Receive Date: 20161217
  Receipt Date: 20161227
  Transmission Date: 20170207
  Serious: Yes (Other)
  Sender: FDA-Public Use
  Company Number: CA-TEVA-720141ACC

PATIENT
  Age: 56 Year
  Sex: Male
  Weight: 124.85 kg

DRUGS (4)
  1. BIAXIN [Concomitant]
     Active Substance: CLARITHROMYCIN
     Dates: start: 20161122
  2. RATIO-ACLAVULANATE [Suspect]
     Active Substance: AMOXICILLIN\CLAVULANATE POTASSIUM
     Dates: start: 20161005, end: 20161015
  3. RATIO-ACLAVULANATE [Suspect]
     Active Substance: AMOXICILLIN\CLAVULANATE POTASSIUM
     Dosage: 500MG-125 TABLET. 1 TABLET X 3 PER DAY WITH FOOD. SECOND ROUND OF 10 DAYS.
     Route: 048
     Dates: start: 2016, end: 2016
  4. RATIO-ACLAVULANATE [Suspect]
     Active Substance: AMOXICILLIN\CLAVULANATE POTASSIUM
     Indication: LOWER RESPIRATORY TRACT INFECTION
     Dosage: 500MG-125 TABLET. 1 TABLET X 3 PER DAY WITH FOOD. FIRST ROUND FO 10 DAYS, THEN 1 WEEK BREAK.
     Route: 048
     Dates: start: 20161005, end: 201610

REACTIONS (13)
  - Pain in extremity [Unknown]
  - Rash [Unknown]
  - Vision blurred [Unknown]
  - Cough [Unknown]
  - Peripheral swelling [Not Recovered/Not Resolved]
  - Diarrhoea [Recovered/Resolved]
  - Muscle spasms [Unknown]
  - Joint range of motion decreased [Unknown]
  - Insomnia [Unknown]
  - Wheezing [Unknown]
  - Pain [Unknown]
  - Muscular weakness [Not Recovered/Not Resolved]
  - Paraesthesia [Unknown]

NARRATIVE: CASE EVENT DATE: 201611
